FAERS Safety Report 10563241 (Version 2)
Quarter: 2014Q4

REPORT INFORMATION
  Report Type: Spontaneous
  Country: US (occurrence: US)
  Receive Date: 20141104
  Receipt Date: 20141104
  Transmission Date: 20150529
  Serious: Yes (Other)
  Sender: FDA-Public Use
  Company Number: US-GLAXOSMITHKLINE-A0865108A

PATIENT
  Age: 48 Year
  Sex: Male

DRUGS (1)
  1. AVANDIA [Suspect]
     Active Substance: ROSIGLITAZONE MALEATE
     Indication: DIABETES MELLITUS
     Dosage: 2 MG, BID
     Dates: start: 200504, end: 200705

REACTIONS (5)
  - Cardiac failure congestive [Unknown]
  - Depression [Unknown]
  - Myocardial infarction [Not Recovered/Not Resolved]
  - Macular oedema [Unknown]
  - Fracture [Unknown]

NARRATIVE: CASE EVENT DATE: 20051005
